FAERS Safety Report 4674234-5 (Version None)
Quarter: 2005Q2

REPORT INFORMATION
  Report Type: 
  Country: None (occurrence: None)
  Receive Date: 20050524
  Receipt Date: 20050506
  Transmission Date: 20051028
  Serious: Yes (Hospitalization, Other)
  Sender: FDA-Public Use
  Company Number: USA050392430

PATIENT
  Age: 78 Year
  Sex: Male

DRUGS (6)
  1. ALIMTA [Suspect]
     Indication: MESOTHELIOMA
     Dosage: 500 MG/M2
     Dates: start: 20041108
  2. GEMZAR [Suspect]
     Indication: MESOTHELIOMA
  3. CARBOPLATIN [Concomitant]
  4. FOLIC ACID [Concomitant]
  5. VITAMIN B-12 [Concomitant]
  6. TENORETIC 100 [Concomitant]

REACTIONS (2)
  - EXTREMITY NECROSIS [None]
  - SKIN DISCOLOURATION [None]
